FAERS Safety Report 19808832 (Version 1)
Quarter: 2021Q3

REPORT INFORMATION
  Report Type: Spontaneous
  Country: RO (occurrence: RO)
  Receive Date: 20210909
  Receipt Date: 20210909
  Transmission Date: 20211014
  Serious: Yes (Death, Other)
  Sender: FDA-Public Use
  Company Number: RO-MACLEODS PHARMACEUTICALS US LTD-MAC2021032612

PATIENT

DRUGS (6)
  1. CITALOPRAM [Concomitant]
     Active Substance: CITALOPRAM HYDROBROMIDE
     Indication: DEPRESSION
     Dosage: 20 MILLIGRAM, QD
     Route: 065
     Dates: start: 2017
  2. ANASTROZOLE. [Concomitant]
     Active Substance: ANASTROZOLE
     Indication: INVASIVE DUCTAL BREAST CARCINOMA
     Dosage: 1 MILLIGRAM, QD
     Route: 065
     Dates: start: 201509
  3. ZOPICLONUM [Concomitant]
     Active Substance: ZOPICLONE
     Indication: INSOMNIA
     Dosage: 7.5 MILLIGRAM, QD
     Route: 065
  4. ALPRAZOLAM. [Concomitant]
     Active Substance: ALPRAZOLAM
     Indication: DEPRESSION
     Dosage: 0.5 MILLIGRAM, TID
     Route: 065
     Dates: start: 2017
  5. PACLITAXEL. [Suspect]
     Active Substance: PACLITAXEL
     Indication: INVASIVE DUCTAL BREAST CARCINOMA
     Dosage: 700 MILLIGRAM/SQ. METER,175 MILLIGRAMS (MG)/M2 EVERY 3 WEEKS, (EVERY 2 CYCLE)
     Route: 065
     Dates: start: 2019
  6. IBANDRONATE [Suspect]
     Active Substance: IBANDRONATE SODIUM
     Indication: INVASIVE DUCTAL BREAST CARCINOMA
     Dosage: 24 MILLIGRAM
     Route: 065
     Dates: start: 2019

REACTIONS (7)
  - Febrile neutropenia [Recovered/Resolved]
  - Vomiting [Unknown]
  - Drug intolerance [Unknown]
  - Neuropathy peripheral [Unknown]
  - Toxicity to various agents [Unknown]
  - Death [Fatal]
  - Condition aggravated [Unknown]

NARRATIVE: CASE EVENT DATE: 2019
